FAERS Safety Report 8145982-X (Version None)
Quarter: 2012Q1

REPORT INFORMATION
  Report Type: 
  Country: None (occurrence: None)
  Receive Date: 20120217
  Receipt Date: 20110503
  Transmission Date: 20120608
  Serious: No
  Sender: FDA-Public Use
  Company Number: US-ALLERGAN-1106126US

PATIENT
  Age: 34 Year
  Sex: Female

DRUGS (2)
  1. TAZORAC [Suspect]
     Indication: ACNE
     Dosage: 1 DF, QHS
     Route: 061
  2. MULTI-VITAMINS [Concomitant]

REACTIONS (1)
  - PREGNANCY [None]
